FAERS Safety Report 7244208-9 (Version None)
Quarter: 2011Q1

REPORT INFORMATION
  Report Type: 
  Country: None (occurrence: None)
  Receive Date: 20110118
  Receipt Date: 20110107
  Transmission Date: 20110831
  Serious: Yes (Death)
  Sender: FDA-Public Use
  Company Number: OMPQ-NO-1012S-1085

PATIENT
  Age: 83 Year
  Sex: Male

DRUGS (12)
  1. PRAVASTATIN SODIUM (PRAVATIN) [Concomitant]
  2. AMPICILLIN SODIUM, SULBACTAM SODIUM (YUCION) [Concomitant]
  3. AZOSEMIDE (DIART) [Concomitant]
  4. PLAVIX [Concomitant]
  5. THEOPHYLLINE (THEOLONG) [Concomitant]
  6. PREDNISOLONE [Concomitant]
  7. OMNIPAQUE 140 [Suspect]
     Indication: CORONARY ARTERIAL STENT INSERTION
     Dosage: 250 ML, SINGLE DOSE, I.A.; SINGLE DOSE, I.A.
     Route: 014
     Dates: start: 20101119, end: 20101119
  8. OMNIPAQUE 140 [Suspect]
     Indication: CORONARY ARTERIAL STENT INSERTION
     Dosage: 250 ML, SINGLE DOSE, I.A.; SINGLE DOSE, I.A.
     Route: 014
     Dates: start: 20101221, end: 20101221
  9. ASPIRIN [Concomitant]
  10. ENALAPRIL MALEATE [Concomitant]
  11. HEPARIN [Suspect]
     Indication: ANTICOAGULANT THERAPY
     Dosage: I.V.; 11000 U, I.V.
     Route: 042
     Dates: start: 20101119, end: 20101119
  12. HEPARIN [Suspect]
     Indication: ANTICOAGULANT THERAPY
     Dosage: I.V.; 11000 U, I.V.
     Route: 042
     Dates: start: 20101221, end: 20101221

REACTIONS (8)
  - SHOCK [None]
  - VOMITING [None]
  - DISSEMINATED INTRAVASCULAR COAGULATION [None]
  - CHEST DISCOMFORT [None]
  - BLOOD PRESSURE DECREASED [None]
  - HEART RATE INCREASED [None]
  - HEPARIN-INDUCED THROMBOCYTOPENIA [None]
  - RESTLESSNESS [None]
